FAERS Safety Report 6055012-1 (Version None)
Quarter: 2009Q1

REPORT INFORMATION
  Report Type: 
  Country: None (occurrence: None)
  Receive Date: 20090122
  Receipt Date: 20090109
  Transmission Date: 20090719
  Serious: Yes (Hospitalization)
  Sender: FDA-Public Use
  Company Number: 1000003562

PATIENT
  Age: 67 Year
  Sex: Female

DRUGS (12)
  1. CITALOPRAM HYDROBROMIDE [Suspect]
     Indication: DEPRESSION
     Dosage: 20 MG (20 MG, 1 IN 1 D) ,ORAL
     Route: 048
     Dates: start: 20061001
  2. TRANSTEC (1260 MICROGRAM) [Suspect]
     Indication: ANALGESIA
     Dosage: 1260 MCG (1260 MCG, 1 IN 1
  3. ASS (100 MILLIGRAM, TABLETS) [Concomitant]
  4. BELOC ZOK MITE (47.5 MILLIGRAM, TABLETS) [Concomitant]
  5. CYNT (0.3 MILLIGRAM, TABLETS) [Concomitant]
  6. LISINOPRIL (20 MILLIGRAM, TABLETS) [Concomitant]
  7. METFORMIN (1000 MILLIGRAM, TABLETS) [Concomitant]
  8. MOVICOL (13.81 GRAM, SOLUTION) [Concomitant]
  9. OMEP (20 MILLIGRAM, TABLETS) [Concomitant]
  10. SIMVASTATIN (40 MILLIGRAM, TABLETS) [Concomitant]
  11. STARLIX (120 MILLIGRAM, TABLETS) [Concomitant]
  12. TOREM (10 MILLIGRAM, TABLETS) [Concomitant]

REACTIONS (9)
  - BLOOD CREATININE INCREASED [None]
  - BLOOD FIBRINOGEN INCREASED [None]
  - BLOOD GLUCOSE INCREASED [None]
  - BLOOD UREA INCREASED [None]
  - BLOOD URIC ACID INCREASED [None]
  - DRUG INTERACTION [None]
  - GLYCOSYLATED HAEMOGLOBIN INCREASED [None]
  - HYPERKALAEMIA [None]
  - SYNCOPE [None]
